FAERS Safety Report 9105219 (Version 1)
Quarter: 2013Q1

REPORT INFORMATION
  Report Type: Spontaneous
  Country: US (occurrence: US)
  Receive Date: 20130220
  Receipt Date: 20130220
  Transmission Date: 20140127
  Serious: Yes (Other)
  Sender: FDA-Public Use
  Company Number: PHEH2013US003901

PATIENT
  Sex: Female

DRUGS (8)
  1. DIOVAN [Suspect]
     Dosage: UNK UKN, UNK
  2. AMLODIPINE [Concomitant]
     Dosage: UNK UKN, UNK
  3. METROL//METOPROLOL TARTRATE [Concomitant]
     Dosage: UNK UKN, UNK
  4. LEVOTHYROXINE [Concomitant]
     Dosage: UNK UKN, UNK
  5. RANITIDINE [Concomitant]
     Dosage: UNK UKN, UNK
  6. VITAMIN B 12 [Concomitant]
     Dosage: UNK UKN, UNK
  7. WOMEN^S MULTI [Concomitant]
     Dosage: UNK UKN, UNK
  8. VITAMIN D [Concomitant]
     Dosage: UNK UKN, UNK

REACTIONS (3)
  - Coeliac disease [Unknown]
  - Urticaria [Unknown]
  - Diarrhoea [Unknown]
